FAERS Safety Report 11233526 (Version 1)
Quarter: 2015Q3

REPORT INFORMATION
  Report Type: Spontaneous
  Country: US (occurrence: US)
  Receive Date: 20150702
  Receipt Date: 20150702
  Transmission Date: 20151125
  Serious: Yes (Hospitalization)
  Sender: FDA-Public Use
  Company Number: US-009507513-1507USA000021

PATIENT
  Sex: Female

DRUGS (1)
  1. EMEND [Suspect]
     Active Substance: APREPITANT
     Indication: CHEMOTHERAPY
     Dosage: THERAPY ROUTE: INJECTION

REACTIONS (1)
  - Adverse event [Unknown]
